FAERS Safety Report 21934085 (Version 3)
Quarter: 2023Q2

REPORT INFORMATION
  Report Type: Report from Study
  Country: US (occurrence: US)
  Receive Date: 20230201
  Receipt Date: 20230406
  Transmission Date: 20230721
  Serious: No
  Sender: FDA-Public Use
  Company Number: US-002147023-NVSC2023US019974

PATIENT
  Sex: Male

DRUGS (5)
  1. CLOBETASOL [Suspect]
     Active Substance: CLOBETASOL
     Indication: Psoriasis
     Dosage: UNK UNK, PRN
     Route: 061
  2. CLOBETASOL [Suspect]
     Active Substance: CLOBETASOL
     Dosage: 0.05 %
     Route: 065
  3. METOPROLOL TARTRATE [Suspect]
     Active Substance: METOPROLOL TARTRATE
     Indication: Psoriasis
     Dosage: 100 MG
     Route: 048
  4. LISINOPRIL [Suspect]
     Active Substance: LISINOPRIL
     Indication: Psoriasis
     Route: 048
  5. ASPIRIN [Suspect]
     Active Substance: ASPIRIN
     Indication: Psoriasis
     Dosage: 81 MG
     Route: 065

REACTIONS (3)
  - Psoriasis [Unknown]
  - Treatment failure [Unknown]
  - Therapy non-responder [Unknown]
